FAERS Safety Report 23886968 (Version 1)
Quarter: 2024Q2

REPORT INFORMATION
  Report Type: Spontaneous
  Country: US (occurrence: US)
  Receive Date: 20240523
  Receipt Date: 20240523
  Transmission Date: 20240716
  Serious: Yes (Other)
  Sender: FDA-Public Use
  Company Number: US-JNJFOC-20240549487

PATIENT
  Sex: Female

DRUGS (1)
  1. OPSUMIT [Suspect]
     Active Substance: MACITENTAN
     Indication: Product used for unknown indication
     Route: 048

REACTIONS (4)
  - Cardiac failure [Unknown]
  - Pulmonary hypertension [Unknown]
  - Oxygen therapy [Unknown]
  - Sjogren^s syndrome [Unknown]
